FAERS Safety Report 6473168-3 (Version None)
Quarter: 2009Q4

REPORT INFORMATION
  Report Type: 
  Country: None (occurrence: None)
  Receive Date: 20091204
  Receipt Date: 20080807
  Transmission Date: 20100525
  Serious: Yes (Other)
  Sender: FDA-Public Use
  Company Number: GB-ELI_LILLY_AND_COMPANY-GB200808001583

PATIENT
  Sex: Female
  Weight: 57 kg

DRUGS (5)
  1. CYMBALTA [Suspect]
     Indication: PAIN
     Dosage: 60 MG, UNKNOWN
     Route: 048
     Dates: start: 20080515, end: 20080717
  2. FENTANYL [Concomitant]
     Indication: BACK PAIN
     Dosage: 100 UG, EVERY HOUR
     Route: 062
     Dates: start: 20080602
  3. MEFENAMIC ACID [Concomitant]
     Indication: BACK PAIN
     Dosage: 500 MG, 3/D
     Route: 048
     Dates: start: 20050101
  4. ALBUTEROL [Concomitant]
     Dosage: 200 UG, AS NEEDED
     Route: 055
  5. TRAMADOL HYDROCHLORIDE [Concomitant]
     Indication: BACK PAIN
     Dosage: 100 MG, AS NEEDED
     Route: 048
     Dates: start: 20050101

REACTIONS (3)
  - CREPITATIONS [None]
  - OEDEMA PERIPHERAL [None]
  - PULMONARY OEDEMA [None]
